FAERS Safety Report 6396088-1 (Version None)
Quarter: 2009Q4

REPORT INFORMATION
  Report Type: 
  Country: None (occurrence: None)
  Receive Date: 20091009
  Receipt Date: 20090929
  Transmission Date: 20100525
  Serious: Yes (Other)
  Sender: FDA-Public Use
  Company Number: US-CVT-090634

PATIENT

DRUGS (11)
  1. RANEXA [Suspect]
     Indication: ANGINA PECTORIS
     Dosage: 1000 MG, BID
     Route: 048
     Dates: start: 20090821, end: 20090824
  2. RANEXA [Suspect]
     Indication: CORONARY ARTERY DISEASE
  3. DILTIAZEM                          /00489701/ [Concomitant]
     Indication: HYPERTENSION
     Dosage: 240 MG, QD
     Route: 048
     Dates: start: 20090821
  4. PRAVACHOL [Concomitant]
  5. ADVAIR DISKUS 100/50 [Concomitant]
  6. COMBIVENT [Concomitant]
  7. ACCOLATE [Concomitant]
  8. EXFORGE [Concomitant]
     Indication: HYPERTENSION
  9. PROTONIX                           /01263201/ [Concomitant]
  10. MULTI-VITAMINS [Concomitant]
  11. VESICARE [Concomitant]

REACTIONS (5)
  - DYSPNOEA [None]
  - HYPERSENSITIVITY [None]
  - MUSCULAR WEAKNESS [None]
  - SWOLLEN TONGUE [None]
  - VISION BLURRED [None]
